FAERS Safety Report 6611942-0 (Version None)
Quarter: 2010Q1

REPORT INFORMATION
  Report Type: 
  Country: None (occurrence: None)
  Receive Date: 20100226
  Receipt Date: 20100226
  Transmission Date: 20100710
  Serious: Yes (Hospitalization)
  Sender: FDA-Public Use
  Company Number: None

PATIENT
  Age: 11 Year
  Sex: Male
  Weight: 51.6 kg

DRUGS (4)
  1. ONCASPAR [Suspect]
     Indication: ACUTE LYMPHOCYTIC LEUKAEMIA
     Dosage: 3675 IU OVER 2 HR  2500MG/M2 ONCE IV
     Route: 042
     Dates: start: 20100119, end: 20100119
  2. PREDNISONE [Concomitant]
  3. METHOTREXATE AND VINCRISTINE [Concomitant]
  4. PEG-ASP [Concomitant]

REACTIONS (5)
  - FACE OEDEMA [None]
  - HYPOTENSION [None]
  - LIP SWELLING [None]
  - TACHYCARDIA [None]
  - VOMITING [None]
